FAERS Safety Report 6521948-8 (Version None)
Quarter: 2009Q4

REPORT INFORMATION
  Report Type: 
  Country: None (occurrence: None)
  Receive Date: 20091230
  Receipt Date: 20091216
  Transmission Date: 20100525
  Serious: Yes (Death, Life-Threatening, Hospitalization)
  Sender: FDA-Public Use
  Company Number: FR-SANOFI-AVENTIS-A01200903924

PATIENT
  Age: 83 Year
  Sex: Male

DRUGS (2)
  1. LEUPRORELIN ACETATE [Suspect]
     Indication: PROSTATE CANCER
     Dosage: DOSE TEXT: ONCE PER 6 MONTHS
     Route: 058
     Dates: start: 20080101
  2. BICALUTAMIDE [Concomitant]
     Indication: PROSTATE CANCER
     Route: 058
     Dates: start: 20080101

REACTIONS (6)
  - BLOOD TESTOSTERONE INCREASED [None]
  - DISEASE PROGRESSION [None]
  - DRUG INEFFECTIVE [None]
  - HAEMATURIA [None]
  - PROSTATIC SPECIFIC ANTIGEN INCREASED [None]
  - URINARY RETENTION [None]
